FAERS Safety Report 6238588-0 (Version None)
Quarter: 2009Q2

REPORT INFORMATION
  Report Type: 
  Country: None (occurrence: None)
  Receive Date: 20090618
  Receipt Date: 20090611
  Transmission Date: 20091009
  Serious: Yes (Other)
  Sender: FDA-Public Use
  Company Number: 2009JP003639

PATIENT
  Age: 68 Year
  Sex: Female
  Weight: 27.2 kg

DRUGS (1)
  1. FUNGUARD(MICAFUNGIN) INJECTION [Suspect]
     Indication: BRONCHOPULMONARY ASPERGILLOSIS
     Dosage: 150 MG, UID/QD, IV DRIP
     Route: 041

REACTIONS (3)
  - CONDITION AGGRAVATED [None]
  - INAPPROPRIATE ANTIDIURETIC HORMONE SECRETION [None]
  - MALAISE [None]
